FAERS Safety Report 11411708 (Version 1)
Quarter: 2015Q3

REPORT INFORMATION
  Report Type: Spontaneous
  Country: US (occurrence: US)
  Receive Date: 20150821
  Receipt Date: 20150821
  Transmission Date: 20151125
  Serious: No
  Sender: FDA-Public Use
  Company Number: US-ELI_LILLY_AND_COMPANY-US201111002933

PATIENT
  Sex: Female

DRUGS (1)
  1. HUMULIN 70/30 [Suspect]
     Active Substance: INSULIN HUMAN

REACTIONS (7)
  - Malaise [Unknown]
  - Vein disorder [Unknown]
  - Arthropathy [Unknown]
  - Gait disturbance [Unknown]
  - Injury [Unknown]
  - Visual acuity reduced [Unknown]
  - Fall [Unknown]
